FAERS Safety Report 4888031-9 (Version None)
Quarter: 2006Q1

REPORT INFORMATION
  Report Type: 
  Country: None (occurrence: None)
  Receive Date: 20060123
  Receipt Date: 20051005
  Transmission Date: 20060701
  Serious: Yes (Hospitalization)
  Sender: FDA-Public Use
  Company Number: US-MERCK-0510USA03415

PATIENT
  Age: 67 Year
  Sex: Female

DRUGS (7)
  1. VIOXX [Suspect]
     Indication: ARTHRALGIA
     Route: 048
     Dates: start: 19990101, end: 20010912
  2. FOSAMAX [Concomitant]
     Route: 048
  3. ESTRADIOL [Concomitant]
     Route: 065
  4. LORAZEPAM [Concomitant]
     Route: 065
  5. DETROL [Concomitant]
     Route: 065
  6. LEVAQUIN [Concomitant]
     Route: 065
  7. HYDRO-TUSSIN HD [Concomitant]
     Route: 065

REACTIONS (1)
  - ISCHAEMIC STROKE [None]
